FAERS Safety Report 8857423 (Version 1)
Quarter: 2012Q4

REPORT INFORMATION
  Report Type: 
  Country: US (occurrence: US)
  Receive Date: 20121024
  Receipt Date: 20121024
  Transmission Date: 20130627
  Serious: No
  Sender: FDA-Public Use
  Company Number: US-PFIZER INC-2012263390

PATIENT
  Age: 57 Year
  Sex: Male
  Weight: 86.17 kg

DRUGS (6)
  1. LYRICA [Suspect]
     Dosage: UNK
     Dates: start: 201205, end: 201206
  2. ANDROGEL [Suspect]
     Indication: BLOOD TESTOSTERONE DECREASED
     Dosage: 5 g, 1x/day
     Dates: start: 201206, end: 201208
  3. ANDROGEL [Suspect]
     Dosage: 5 g, 2x/day
     Route: 061
     Dates: start: 201208
  4. PERCOCET [Concomitant]
     Indication: PAIN
     Dosage: UNK
  5. CELEBREX [Concomitant]
     Indication: ARTHRITIS
     Dosage: UNK
  6. BABY ASPIRIN [Concomitant]
     Indication: PROPHYLAXIS
     Dosage: UNK

REACTIONS (2)
  - Blood testosterone decreased [Unknown]
  - Weight increased [Unknown]
